FAERS Safety Report 11323477 (Version 1)
Quarter: 2015Q3

REPORT INFORMATION
  Report Type: Spontaneous
  Country: NL (occurrence: NL)
  Receive Date: 20150730
  Receipt Date: 20150730
  Transmission Date: 20151125
  Serious: Yes (Hospitalization)
  Sender: FDA-Public Use
  Company Number: NL-TEVA-581119ISR

PATIENT
  Age: 49 Year
  Sex: Male
  Weight: 80 kg

DRUGS (3)
  1. RISPERIDON TABLET OMHULD 2MG [Concomitant]
     Dosage: 2 MILLIGRAM DAILY; ONCE DAILY ONE PIECE
     Route: 048
  2. BIPERIDEEN TABLET 2MG [Concomitant]
     Dosage: 2 MILLIGRAM DAILY; ONCE DAILY ONE PIECE, ADDITIONAL INFO: AS REQUIRED
     Route: 048
  3. METFORMIN [Suspect]
     Active Substance: METFORMIN HYDROCHLORIDE
     Route: 048
     Dates: start: 1998

REACTIONS (2)
  - Blood lactic acid increased [Recovered/Resolved]
  - Suicide attempt [Recovered/Resolved]

NARRATIVE: CASE EVENT DATE: 20150708
